FAERS Safety Report 9159880 (Version 1)
Quarter: 2013Q1

REPORT INFORMATION
  Report Type: Spontaneous
  Country: US (occurrence: US)
  Receive Date: 20130313
  Receipt Date: 20130313
  Transmission Date: 20140127
  Serious: Yes (Other)
  Sender: FDA-Public Use
  Company Number: US-AMGEN-USASP2013016943

PATIENT
  Age: 67 Year
  Sex: Male

DRUGS (2)
  1. ENBREL [Suspect]
     Indication: RHEUMATOID ARTHRITIS
     Dosage: 50 MG, QWK
     Dates: start: 20120409, end: 20130227
  2. METHOTREXATE [Concomitant]
     Dosage: 8 PILLS WEEKLY
     Dates: start: 2011

REACTIONS (3)
  - Blood pressure abnormal [Recovered/Resolved]
  - Respiratory tract congestion [Not Recovered/Not Resolved]
  - Jaw disorder [Not Recovered/Not Resolved]
